FAERS Safety Report 9467421 (Version 1)
Quarter: 2013Q3

REPORT INFORMATION
  Report Type: Spontaneous
  Country: US (occurrence: None)
  Receive Date: 20130819
  Receipt Date: 20130819
  Transmission Date: 20140515
  Serious: No
  Sender: FDA-Public Use
  Company Number: None

PATIENT
  Age: 45 Year
  Sex: Male
  Weight: 80 kg

DRUGS (2)
  1. PEGASPARAGASE [Suspect]
     Indication: ACUTE LYMPHOCYTIC LEUKAEMIA
     Dosage: 3,600  --  INTRAVENOUS
     Route: 042
     Dates: start: 20130118, end: 20130118
  2. RED BLOOD CELLS [Concomitant]

REACTIONS (1)
  - Anaphylactic reaction [None]
